FAERS Safety Report 8001123 (Version 4)
Quarter: 2013Q2

REPORT INFORMATION
  Report Type: Spontaneous
  Country: US (occurrence: US)
  Receive Date: 20110621
  Receipt Date: 20130522
  Transmission Date: 20140414
  Serious: No
  Sender: FDA-Public Use
  Company Number: US-ASTRAZENECA-2011SE12261

PATIENT
  Age: 52 Year
  Sex: Female
  Weight: 49.9 kg

DRUGS (5)
  1. RHINOCORT AQUA [Suspect]
     Indication: MULTIPLE ALLERGIES
     Dosage: 2 SPRAYS DAILY
     Route: 045
  2. RHINOCORT AQUA [Suspect]
     Indication: MULTIPLE ALLERGIES
     Dosage: 32MCG
     Route: 045
  3. ATROVAN NASAL SPRAY [Concomitant]
  4. SINGULAIR [Concomitant]
  5. ZIRTEC [Concomitant]

REACTIONS (12)
  - Malaise [Unknown]
  - Dizziness [Unknown]
  - Chest discomfort [Unknown]
  - Dizziness [Unknown]
  - Ear discomfort [Unknown]
  - Chest discomfort [Unknown]
  - Nasal congestion [Unknown]
  - Multiple allergies [Unknown]
  - Diabetes mellitus [Unknown]
  - Feeling abnormal [Unknown]
  - Adverse event [Unknown]
  - Drug dose omission [Unknown]
